FAERS Safety Report 5377731-2 (Version None)
Quarter: 2007Q3

REPORT INFORMATION
  Report Type: 
  Country: None (occurrence: None)
  Receive Date: 20070703
  Receipt Date: 20070621
  Transmission Date: 20080115
  Serious: Yes (Other)
  Sender: FDA-Public Use
  Company Number: US-PFIZER INC-2007051327

PATIENT
  Sex: Female
  Weight: 90.9 kg

DRUGS (5)
  1. CHANTIX [Suspect]
     Indication: EX-SMOKER
  2. PAXIL [Concomitant]
  3. CRESTOR [Concomitant]
  4. ATENOLOL [Concomitant]
     Indication: HYPERTENSION
  5. SITAGLIPTIN PHOSPHATE [Concomitant]

REACTIONS (1)
  - BLOOD GLUCOSE INCREASED [None]
